FAERS Safety Report 16633383 (Version 2)
Quarter: 2019Q3

REPORT INFORMATION
  Report Type: Spontaneous
  Country: FR (occurrence: FR)
  Receive Date: 20190725
  Receipt Date: 20190725
  Transmission Date: 20191004
  Serious: Yes (Death)
  Sender: FDA-Public Use
  Company Number: PHHY2019FR172235

PATIENT
  Age: 66 Year
  Sex: Female

DRUGS (3)
  1. AMLODIPINE [Suspect]
     Active Substance: AMLODIPINE BESYLATE
     Indication: TOXICITY TO VARIOUS AGENTS
     Dosage: 20 DF, UNK
     Route: 048
  2. BISOPROLOL FUMARATE. [Suspect]
     Active Substance: BISOPROLOL FUMARATE
     Indication: TOXICITY TO VARIOUS AGENTS
     Dosage: UNK
     Route: 048
  3. ACEBUTOLOL [Suspect]
     Active Substance: ACEBUTOLOL
     Indication: TOXICITY TO VARIOUS AGENTS
     Dosage: 60 DF, UNK
     Route: 048

REACTIONS (1)
  - Cardiogenic shock [Fatal]

NARRATIVE: CASE EVENT DATE: 20181223
